FAERS Safety Report 18854759 (Version 1)
Quarter: 2021Q1

REPORT INFORMATION
  Report Type: Spontaneous
  Country: US (occurrence: US)
  Receive Date: 20210205
  Receipt Date: 20210205
  Transmission Date: 20210420
  Serious: Yes (Other)
  Sender: FDA-Public Use
  Company Number: US-ELI_LILLY_AND_COMPANY-US202101011288

PATIENT
  Sex: Female

DRUGS (4)
  1. HUMULIN N [Suspect]
     Active Substance: INSULIN HUMAN
     Indication: TYPE 2 DIABETES MELLITUS
     Dosage: 39 U, DAILY
     Route: 058
     Dates: start: 2006
  2. HUMULIN N [Suspect]
     Active Substance: INSULIN HUMAN
     Dosage: 39 U, DAILY
     Route: 058
     Dates: start: 2006
  3. HUMULIN N [Suspect]
     Active Substance: INSULIN HUMAN
     Indication: TYPE 2 DIABETES MELLITUS
     Dosage: 39 U, DAILY
     Route: 058
     Dates: start: 2006
  4. HUMULIN N [Suspect]
     Active Substance: INSULIN HUMAN
     Dosage: 39 U, DAILY
     Route: 058
     Dates: start: 2006

REACTIONS (2)
  - Macular degeneration [Not Recovered/Not Resolved]
  - Visual impairment [Not Recovered/Not Resolved]

NARRATIVE: CASE EVENT DATE: 2016
